FAERS Safety Report 6547204-X (Version None)
Quarter: 2010Q1

REPORT INFORMATION
  Report Type: 
  Country: None (occurrence: None)
  Receive Date: 20100122
  Receipt Date: 20100119
  Transmission Date: 20100710
  Serious: Yes (Hospitalization)
  Sender: FDA-Public Use
  Company Number: US-ELI_LILLY_AND_COMPANY-US201001004094

PATIENT
  Sex: Female

DRUGS (5)
  1. HUMALOG MIX 75/25 [Suspect]
     Indication: DIABETES MELLITUS
     Dosage: 6 U, DAILY (1/D)
     Dates: start: 20100113
  2. HUMALOG MIX 75/25 [Suspect]
     Dosage: 6 U, DAILY (1/D)
     Dates: start: 20100113
  3. HUMALOG MIX 75/25 [Suspect]
     Dosage: 6 U, DAILY (1/D)
     Dates: start: 20100113
  4. HUMALOG [Suspect]
     Indication: DIABETES MELLITUS
     Dosage: 5 U, 2/D
     Dates: start: 20040101, end: 20100113
  5. LANTUS [Concomitant]
     Dosage: 20 U, UNKNOWN

REACTIONS (5)
  - DRUG DISPENSING ERROR [None]
  - EXOSTOSIS [None]
  - INFECTION [None]
  - SKIN ULCER [None]
  - WRONG DRUG ADMINISTERED [None]
